FAERS Safety Report 6986341-2 (Version None)
Quarter: 2010Q3

REPORT INFORMATION
  Report Type: 
  Country: None (occurrence: None)
  Receive Date: 20100910
  Receipt Date: 20100906
  Transmission Date: 20110219
  Serious: Yes (Other)
  Sender: FDA-Public Use
  Company Number: 018296

PATIENT
  Age: 20 Year
  Sex: Female

DRUGS (3)
  1. KEPPRA [Suspect]
     Indication: CONVULSION
     Dosage: (1000 MG BID ORAL)
     Route: 048
     Dates: start: 20100722, end: 20100803
  2. OMEPRAZOLE [Concomitant]
  3. DEXAMETHASONE [Concomitant]

REACTIONS (2)
  - ALANINE AMINOTRANSFERASE INCREASED [None]
  - HEPATOTOXICITY [None]
